FAERS Safety Report 8576016-0 (Version None)
Quarter: 2012Q3

REPORT INFORMATION
  Report Type: 
  Country: None (occurrence: None)
  Receive Date: 20120807
  Receipt Date: 20120711
  Transmission Date: 20120928
  Serious: Yes (Other)
  Sender: FDA-Public Use
  Company Number: US-PFIZER INC-2012187396

PATIENT
  Age: 52 Year
  Sex: Female

DRUGS (1)
  1. SULFAMETHOXAZOLE AND TRIMETHOPRIM [Suspect]
     Indication: NOCARDIOSIS
     Dosage: UNK

REACTIONS (3)
  - BONE MARROW FAILURE [None]
  - RASH [None]
  - TRANSAMINASES INCREASED [None]
